FAERS Safety Report 9929833 (Version 1)
Quarter: 2014Q1

REPORT INFORMATION
  Report Type: Report from Study
  Country: US (occurrence: US)
  Receive Date: 20140227
  Receipt Date: 20140227
  Transmission Date: 20141002
  Serious: No
  Sender: FDA-Public Use
  Company Number: US-ABBVIE-12P-163-0997023-00

PATIENT
  Age: 50 Year
  Sex: Male
  Weight: 86.26 kg

DRUGS (2)
  1. HUMIRA (ABBOTT) [Suspect]
     Indication: PSORIASIS
     Dates: start: 2010, end: 201208
  2. METHOTREXATE [Concomitant]
     Indication: PSORIASIS
     Dates: start: 2002

REACTIONS (2)
  - Pruritus [Not Recovered/Not Resolved]
  - Psoriasis [Not Recovered/Not Resolved]
